FAERS Safety Report 24281982 (Version 2)
Quarter: 2024Q3

REPORT INFORMATION
  Report Type: Spontaneous
  Country: FR (occurrence: FR)
  Receive Date: 20240904
  Receipt Date: 20240909
  Transmission Date: 20241016
  Serious: Yes (Hospitalization)
  Sender: AVERITAS
  Company Number: FR-GRUNENTHAL-2024-124540

PATIENT
  Age: 40 Year
  Sex: Female
  Weight: 54 kg

DRUGS (7)
  1. QUTENZA [Suspect]
     Active Substance: CAPSAICIN
     Indication: Neuralgia
     Dosage: 1 DOSAGE FORM, ONCE
     Route: 003
     Dates: start: 20240802, end: 20240802
  2. QUTENZA [Suspect]
     Active Substance: CAPSAICIN
     Indication: Intervertebral disc protrusion
     Dosage: UNK
     Route: 065
     Dates: start: 202111, end: 202111
  3. QUTENZA [Suspect]
     Active Substance: CAPSAICIN
     Dosage: UNK
     Route: 065
  4. QUTENZA [Suspect]
     Active Substance: CAPSAICIN
     Dosage: UNK
     Route: 003
  5. QUTENZA [Suspect]
     Active Substance: CAPSAICIN
     Dosage: UNK
     Route: 003
  6. QUTENZA [Suspect]
     Active Substance: CAPSAICIN
     Dosage: UNK
     Route: 065
  7. QUTENZA [Suspect]
     Active Substance: CAPSAICIN
     Dosage: UNK
     Route: 003

REACTIONS (3)
  - Application site burn [Recovering/Resolving]
  - Fatigue [Recovered/Resolved]
  - Application site burn [Unknown]

NARRATIVE: CASE EVENT DATE: 20240802
